FAERS Safety Report 9720400 (Version 1)
Quarter: 2013Q4

REPORT INFORMATION
  Report Type: Spontaneous
  Country: US (occurrence: US)
  Receive Date: 20131129
  Receipt Date: 20131129
  Transmission Date: 20140711
  Serious: Yes (Hospitalization)
  Sender: FDA-Public Use
  Company Number: US-ASTRAZENECA-2013SE86208

PATIENT
  Age: 64 Year
  Sex: Female
  Weight: 93.9 kg

DRUGS (5)
  1. SYMBICORT [Suspect]
     Indication: CHRONIC OBSTRUCTIVE PULMONARY DISEASE
     Dosage: 160/4.5, 2 PUFFS PRN
     Route: 055
     Dates: end: 201311
  2. SYMBICORT [Suspect]
     Indication: PULMONARY FIBROSIS
     Dosage: 160/4.5, 2 PUFFS PRN
     Route: 055
     Dates: end: 201311
  3. SYMBICORT [Suspect]
     Indication: CHRONIC OBSTRUCTIVE PULMONARY DISEASE
     Dosage: 160/4.5, 2 PUFFS BID
     Route: 055
     Dates: start: 20131111
  4. SYMBICORT [Suspect]
     Indication: PULMONARY FIBROSIS
     Dosage: 160/4.5, 2 PUFFS BID
     Route: 055
     Dates: start: 20131111
  5. RESCUE INHALERS [Suspect]

REACTIONS (5)
  - Injection site infection [Recovered/Resolved]
  - Weight fluctuation [Not Recovered/Not Resolved]
  - Fluid retention [Not Recovered/Not Resolved]
  - Anxiety [Recovered/Resolved]
  - Blood glucose increased [Not Recovered/Not Resolved]
